FAERS Safety Report 17527519 (Version 1)
Quarter: 2020Q1

REPORT INFORMATION
  Report Type: Report from Study
  Country: NL (occurrence: NL)
  Receive Date: 20200311
  Receipt Date: 20200311
  Transmission Date: 20200409
  Serious: Yes (Hospitalization)
  Sender: FDA-Public Use
  Company Number: NL-JNJFOC-20200243689

PATIENT
  Age: 30 Year
  Sex: Female

DRUGS (9)
  1. ANAKINRA [Concomitant]
     Active Substance: ANAKINRA
     Route: 058
  2. FLUCONAZOLE. [Concomitant]
     Active Substance: FLUCONAZOLE
     Route: 065
  3. LOPERAMIDE HYDROCHLORIDE. [Concomitant]
     Active Substance: LOPERAMIDE HYDROCHLORIDE
     Route: 065
  4. PREDNISONE. [Concomitant]
     Active Substance: PREDNISONE
     Route: 065
  5. PREGABALINE [Concomitant]
     Active Substance: PREGABALIN
     Route: 065
  6. STELARA [Suspect]
     Active Substance: USTEKINUMAB
     Route: 058
  7. OXYCODONE [Concomitant]
     Active Substance: OXYCODONE
     Dosage: 5 TO 20 MG  (IF NEEDED UP TO 6 TIMES A DAY)
     Route: 048
  8. STELARA [Suspect]
     Active Substance: USTEKINUMAB
     Indication: CROHN^S DISEASE
     Dosage: FOLLOWED BY 90 MG SUBCUTANEOUS
     Route: 042
     Dates: start: 20190701
  9. DOMPERIDONE [Concomitant]
     Active Substance: DOMPERIDONE
     Route: 065

REACTIONS (1)
  - Abdominal wall abscess [Recovering/Resolving]

NARRATIVE: CASE EVENT DATE: 20191227
